FAERS Safety Report 5262497-7 (Version None)
Quarter: 2007Q1

REPORT INFORMATION
  Report Type: 
  Country: None (occurrence: None)
  Receive Date: 20070308
  Receipt Date: 20070308
  Transmission Date: 20070707
  Serious: Yes (Hospitalization)
  Sender: FDA-Public Use
  Company Number: None

PATIENT
  Sex: Male
  Weight: 114.3065 kg

DRUGS (2)
  1. DOCETAXEL [Suspect]
     Indication: NEOPLASM MALIGNANT
     Dosage: 168 MG IV EVERY 3 WKS
     Route: 042
     Dates: start: 20070206
  2. CISPLATIN [Suspect]
     Indication: NEOPLASM MALIGNANT
     Dosage: 134 MG IV EVERY 3 WKS
     Route: 042
     Dates: start: 20070206

REACTIONS (2)
  - HYPERKALAEMIA [None]
  - HYPOTENSION [None]
